FAERS Safety Report 10224858 (Version 1)
Quarter: 2014Q2

REPORT INFORMATION
  Report Type: Spontaneous
  Country: US (occurrence: US)
  Receive Date: 20140609
  Receipt Date: 20140609
  Transmission Date: 20141212
  Serious: Yes (Other)
  Sender: FDA-Public Use
  Company Number: US-GLAXOSMITHKLINE-A1076299A

PATIENT
  Age: 68 Year
  Sex: Male

DRUGS (1)
  1. PROMACTA [Suspect]
     Indication: LEUKAEMIA
     Dosage: 75MG PER DAY
     Route: 048
     Dates: start: 20140305

REACTIONS (2)
  - Haemorrhage [Unknown]
  - Platelet count increased [Unknown]
